FAERS Safety Report 23107933 (Version 1)
Quarter: 2023Q4

REPORT INFORMATION
  Report Type: Spontaneous
  Country: IT (occurrence: IT)
  Receive Date: 20231026
  Receipt Date: 20231026
  Transmission Date: 20240109
  Serious: Yes (Death, Hospitalization)
  Sender: FDA-Public Use
  Company Number: IT-drreddys-LIT/ITL/23/0180775

PATIENT
  Age: 63 Year
  Sex: Male

DRUGS (4)
  1. CABAZITAXEL [Suspect]
     Active Substance: CABAZITAXEL
     Indication: Prostate cancer
     Dosage: 20 MG/M2 EVERY 21 DAYS
     Dates: start: 202206
  2. TRIPTORELIN [Suspect]
     Active Substance: TRIPTORELIN
     Indication: Product used for unknown indication
     Dosage: 11.25MG EVERY THREE MONTHS
     Route: 058
  3. DOCETAXEL [Suspect]
     Active Substance: DOCETAXEL
     Indication: Product used for unknown indication
     Dosage: 75 MG/M2 EVERY 21 DAYS FOR THREE CYCLES
  4. CARBOPLATIN [Suspect]
     Active Substance: CARBOPLATIN
     Indication: Prostate cancer
     Dosage: AUC 4 MG/ML/MIN
     Dates: start: 202206

REACTIONS (8)
  - Prostate cancer [Fatal]
  - Disease progression [Fatal]
  - Metastases to peritoneum [Unknown]
  - Acute kidney injury [Unknown]
  - Hydronephrosis [Unknown]
  - Sepsis [Unknown]
  - Pneumonia klebsiella [Unknown]
  - Drug ineffective for unapproved indication [Unknown]

NARRATIVE: CASE EVENT DATE: 20220601
